FAERS Safety Report 20044041 (Version 2)
Quarter: 2021Q4

REPORT INFORMATION
  Report Type: Spontaneous
  Country: GR (occurrence: GR)
  Receive Date: 20211108
  Receipt Date: 20211122
  Transmission Date: 20220303
  Serious: Yes (Hospitalization, Other)
  Sender: FDA-Public Use
  Company Number: GR-PFIZER INC-202101399814

PATIENT

DRUGS (3)
  1. DOXYCYCLINE [Suspect]
     Active Substance: DOXYCYCLINE
     Indication: COVID-19
     Dosage: 1 DOSAGE FORM
     Route: 065
  2. CEFTRIAXONE [Concomitant]
     Active Substance: CEFTRIAXONE
     Indication: COVID-19
     Dosage: UNK
     Route: 065
  3. ACENOCOUMAROL [Concomitant]
     Active Substance: ACENOCOUMAROL
     Indication: Thrombosis prophylaxis
     Route: 065

REACTIONS (6)
  - International normalised ratio increased [Recovered/Resolved]
  - Bleeding time prolonged [Recovered/Resolved]
  - Immune thrombocytopenia [Recovered/Resolved]
  - Vessel puncture site haemorrhage [Recovered/Resolved]
  - Potentiating drug interaction [Recovered/Resolved]
  - Intentional product use issue [Recovered/Resolved]
